FAERS Safety Report 5508134-5 (Version None)
Quarter: 2007Q4

REPORT INFORMATION
  Report Type: 
  Country: None (occurrence: None)
  Receive Date: 20071106
  Receipt Date: 20071025
  Transmission Date: 20080405
  Serious: Yes (Death)
  Sender: FDA-Public Use
  Company Number: US-ELI_LILLY_AND_COMPANY-US200710003801

PATIENT
  Sex: Female
  Weight: 83.9 kg

DRUGS (4)
  1. CYMBALTA [Suspect]
     Indication: DEPRESSION
     Dosage: 30 MG, UNK
     Route: 048
     Dates: start: 20070911
  2. CYMBALTA [Suspect]
     Dosage: 60 MG, UNK
     Route: 048
     Dates: start: 20070101
  3. ACTIVELLA [Concomitant]
     Indication: MOOD SWINGS
     Dosage: 0.5 MG, UNK
     Dates: start: 20070911
  4. MAXZIDE [Concomitant]
     Indication: BLOOD PRESSURE INCREASED
     Dosage: 25 MG, DAILY (1/D)
     Dates: start: 20070925

REACTIONS (1)
  - HAEMORRHAGE INTRACRANIAL [None]
